FAERS Safety Report 8369973-9 (Version None)
Quarter: 2012Q2

REPORT INFORMATION
  Report Type: 
  Country: None (occurrence: None)
  Receive Date: 20120518
  Receipt Date: 20120509
  Transmission Date: 20120825
  Serious: Yes (Death, Life-Threatening, Hospitalization)
  Sender: FDA-Public Use
  Company Number: CN-PFIZER INC-2012104763

PATIENT
  Age: 25 Year
  Sex: Male

DRUGS (5)
  1. TYLENOL COLD [Suspect]
     Indication: ABDOMINAL DISTENSION
  2. TYLENOL COLD [Suspect]
     Indication: HEADACHE
  3. IBUPROFEN [Suspect]
     Indication: PRODUCT USED FOR UNKNOWN INDICATION
     Dosage: TOOK A TOTAL OF 3 ^PIECES^
     Route: 048
     Dates: start: 20120401, end: 20120401
  4. TYLENOL COLD [Suspect]
     Indication: NASOPHARYNGITIS
     Dosage: TOOK A TOTAL OF 6 TABLETS
     Route: 048
     Dates: start: 20120401, end: 20120401
  5. TYLENOL COLD [Suspect]
     Indication: FATIGUE

REACTIONS (5)
  - HEPATIC FAILURE [None]
  - TOXICITY TO VARIOUS AGENTS [None]
  - HEPATORENAL SYNDROME [None]
  - LUNG INFECTION [None]
  - COMA [None]
